FAERS Safety Report 7748199-3 (Version None)
Quarter: 2011Q3

REPORT INFORMATION
  Report Type: 
  Country: None (occurrence: None)
  Receive Date: 20110913
  Receipt Date: 20110513
  Transmission Date: 20111222
  Serious: Yes (Other)
  Sender: FDA-Public Use
  Company Number: TT-ELI_LILLY_AND_COMPANY-TT201105004646

PATIENT
  Age: 63 Year
  Sex: Female

DRUGS (3)
  1. TEGRETOL [Concomitant]
  2. DULOXETINE HYDROCHLORIDE [Suspect]
     Indication: DEPRESSION
     Dosage: 60 MG, QD
     Route: 048
  3. TRAMADOL HYDROCHLORIDE/ACETAMINOPHEN [Concomitant]

REACTIONS (2)
  - HEPATOMEGALY [None]
  - HEPATIC FAILURE [None]
